FAERS Safety Report 11620380 (Version 1)
Quarter: 2015Q4

REPORT INFORMATION
  Report Type: Spontaneous
  Country: ES (occurrence: ES)
  Receive Date: 20151012
  Receipt Date: 20151012
  Transmission Date: 20160304
  Serious: Yes (Hospitalization)
  Sender: FDA-Public Use
  Company Number: ES-IPCA LABORATORIES LIMITED-IPC201509-000647

PATIENT
  Age: 75 Year
  Sex: Female

DRUGS (13)
  1. DIAZEPAM. [Concomitant]
     Active Substance: DIAZEPAM
     Route: 042
  2. NORMAL SALINE [Concomitant]
     Active Substance: SODIUM CHLORIDE
  3. INSULIN [Concomitant]
     Active Substance: INSULIN NOS
  4. NORMAL SALINE [Concomitant]
     Active Substance: SODIUM CHLORIDE
  5. METFORMIN HYDROCHLORIDE. [Suspect]
     Active Substance: METFORMIN HYDROCHLORIDE
     Indication: DIABETES MELLITUS
  6. ENALAPRIL [Suspect]
     Active Substance: ENALAPRIL
     Indication: HYPERTENSION
  7. FLUMAZENIL. [Concomitant]
     Active Substance: FLUMAZENIL
  8. BUPIVACAINE [Concomitant]
     Active Substance: BUPIVACAINE
     Indication: ANAESTHETIC PREMEDICATION
  9. GLUCOSE [Concomitant]
     Active Substance: DEXTROSE
  10. ALPRAZOLAM. [Concomitant]
     Active Substance: ALPRAZOLAM
     Route: 048
  11. ONDANSETRON [Concomitant]
     Active Substance: ONDANSETRON
  12. CAPTOPRIL. [Concomitant]
     Active Substance: CAPTOPRIL
  13. POTASSIUM CHLORIDE. [Concomitant]
     Active Substance: POTASSIUM CHLORIDE

REACTIONS (2)
  - Hyponatraemic encephalopathy [Recovered/Resolved]
  - Inappropriate antidiuretic hormone secretion [Unknown]
